FAERS Safety Report 10062864 (Version 1)
Quarter: 2014Q2

REPORT INFORMATION
  Report Type: Spontaneous
  Country: GB (occurrence: GB)
  Receive Date: 20140407
  Receipt Date: 20140407
  Transmission Date: 20141212
  Serious: Yes (Other)
  Sender: FDA-Public Use
  Company Number: GB-WATSON-2014-06328

PATIENT
  Age: 24 Year
  Sex: Female
  Weight: 108 kg

DRUGS (2)
  1. GENTAMICIN (UNKNOWN) [Suspect]
     Indication: ANTIBIOTIC PROPHYLAXIS
     Dosage: 320 MG, UNKNOWN
     Route: 042
     Dates: start: 20131002, end: 20131002
  2. METRONIDAZOLE (UNKNOWN) [Suspect]
     Indication: PROPHYLAXIS
     Dosage: 500 MG, UNKNOWN
     Route: 042
     Dates: start: 20131002, end: 20131002

REACTIONS (4)
  - Drug hypersensitivity [Recovered/Resolved]
  - Swelling face [Recovered/Resolved]
  - Wheezing [Recovered/Resolved]
  - Eye pruritus [Recovered/Resolved]
